FAERS Safety Report 9503869 (Version 2)
Quarter: 2013Q3

REPORT INFORMATION
  Report Type: Spontaneous
  Country: US (occurrence: US)
  Receive Date: 20130906
  Receipt Date: 20130906
  Transmission Date: 20140515
  Serious: Yes (Hospitalization)
  Sender: FDA-Public Use
  Company Number: US-GILEAD-2013-0081107

PATIENT
  Age: 39 Year
  Sex: Male

DRUGS (1)
  1. STRIBILD [Suspect]
     Indication: HIV INFECTION
     Dosage: 1 DF, UNK
     Route: 048
     Dates: start: 20130314, end: 20130730

REACTIONS (5)
  - Pharyngeal inflammation [Recovered/Resolved]
  - Genital herpes [Recovered/Resolved]
  - Mouth ulceration [Recovered/Resolved]
  - Genital lesion [Recovered/Resolved]
  - Rash [Recovered/Resolved]
